FAERS Safety Report 20535147 (Version 1)
Quarter: 2022Q1

REPORT INFORMATION
  Report Type: Spontaneous
  Country: JP (occurrence: JP)
  Receive Date: 20220302
  Receipt Date: 20220302
  Transmission Date: 20220423
  Serious: Yes (Death, Congenital Anomaly, Other)
  Sender: FDA-Public Use
  Company Number: JP-SAKK-2022SA064637AA

PATIENT
  Age: 63 Year
  Sex: Male
  Weight: 50 kg

DRUGS (4)
  1. FABRAZYME [Suspect]
     Active Substance: AGALSIDASE BETA
     Indication: Fabry^s disease
     Dosage: 50 MG, QOW
     Route: 041
     Dates: start: 20040823, end: 20220119
  2. DROXIDOPA [Concomitant]
     Active Substance: DROXIDOPA
     Indication: Product used for unknown indication
     Dosage: 2 DF/DAY
     Route: 048
     Dates: end: 20220201
  3. AMEZINIUM METILSULFATE [Concomitant]
     Active Substance: AMEZINIUM METILSULFATE
     Indication: Product used for unknown indication
     Dosage: 2 DF/DAY
     Route: 048
     Dates: end: 20220201
  4. MIDODRINE HYDROCHLORIDE [Concomitant]
     Active Substance: MIDODRINE HYDROCHLORIDE
     Indication: Product used for unknown indication
     Dosage: 2 DF/DAY
     Route: 048
     Dates: end: 20220201

REACTIONS (2)
  - Disease progression [Fatal]
  - Renal impairment [Fatal]
